FAERS Safety Report 9840487 (Version 1)
Quarter: 2013Q4

REPORT INFORMATION
  Report Type: Spontaneous
  Country: US (occurrence: None)
  Receive Date: 20131211
  Receipt Date: 20131211
  Transmission Date: 20140711
  Serious: Yes (Other)
  Sender: FDA-Public Use
  Company Number: ALL1-2012-02551

PATIENT
  Age: 7 Year
  Sex: Female
  Weight: 27.22 kg

DRUGS (1)
  1. INTUNIV [Suspect]
     Indication: FEELING ABNORMAL
     Dosage: 1X/DAY
     Route: 048
     Dates: start: 20110301, end: 20120227

REACTIONS (4)
  - Syncope [None]
  - Palpitations [None]
  - Dizziness [None]
  - Off label use [None]
